FAERS Safety Report 6952659-2 (Version None)
Quarter: 2010Q3

REPORT INFORMATION
  Report Type: 
  Country: None (occurrence: None)
  Receive Date: 20100829
  Receipt Date: 20100512
  Transmission Date: 20110219
  Serious: No
  Sender: FDA-Public Use
  Company Number: US-ABBOTT-10P-163-0643928-00

PATIENT
  Sex: Male

DRUGS (6)
  1. NIASPAN [Suspect]
     Indication: LOW DENSITY LIPOPROTEIN INCREASED
     Dosage: AT BEDTIME
     Route: 048
     Dates: start: 20100401
  2. NIASPAN [Suspect]
     Indication: HIGH DENSITY LIPOPROTEIN DECREASED
  3. NIASPAN [Suspect]
     Indication: BLOOD TRIGLYCERIDES INCREASED
  4. DIURETIC [Concomitant]
     Indication: PRODUCT USED FOR UNKNOWN INDICATION
  5. AMLODIPINE [Concomitant]
     Indication: PRODUCT USED FOR UNKNOWN INDICATION
  6. POTASSIUM CHLORIDE [Concomitant]
     Indication: PRODUCT USED FOR UNKNOWN INDICATION

REACTIONS (4)
  - BLOOD PRESSURE DECREASED [None]
  - BLOOD PRESSURE INCREASED [None]
  - DIZZINESS [None]
  - FLUSHING [None]
